FAERS Safety Report 8090981-X (Version None)
Quarter: 2012Q1

REPORT INFORMATION
  Report Type: 
  Country: None (occurrence: None)
  Receive Date: 20120128
  Receipt Date: 20110726
  Transmission Date: 20120608
  Serious: No
  Sender: FDA-Public Use
  Company Number: US-ABBOTT-11P-163-0842933-00

PATIENT
  Sex: Male
  Weight: 98.972 kg

DRUGS (1)
  1. HUMIRA [Suspect]
     Indication: CROHN'S DISEASE
     Dates: start: 20080101

REACTIONS (2)
  - INJECTION SITE HAEMATOMA [None]
  - SLEEP APNOEA SYNDROME [None]
